FAERS Safety Report 25664849 (Version 1)
Quarter: 2025Q3

REPORT INFORMATION
  Report Type: Spontaneous
  Country: US (occurrence: US)
  Receive Date: 20250811
  Receipt Date: 20250811
  Transmission Date: 20251021
  Serious: Yes (Other)
  Sender: RISING PHARMACEUTICALS
  Company Number: US-RISINGPHARMA-US-2025RISLIT00385

PATIENT
  Age: 68 Year
  Sex: Male

DRUGS (6)
  1. MYCOPHENOLATE MOFETIL [Suspect]
     Active Substance: MYCOPHENOLATE MOFETIL
     Indication: Post procedural inflammation
     Route: 048
  2. BRIMONIDINE [Concomitant]
     Active Substance: BRIMONIDINE TARTRATE
     Indication: Glaucoma
     Route: 061
  3. TIMOLOL [Concomitant]
     Active Substance: TIMOLOL
     Indication: Glaucoma
     Route: 061
  4. PREDNISOLONE [Concomitant]
     Active Substance: PREDNISOLONE
     Indication: Corneal oedema
     Route: 061
  5. SODIUM CHLORIDE [Concomitant]
     Active Substance: SODIUM CHLORIDE
     Indication: Corneal oedema
  6. PREDNISOLONE ACETATE [Concomitant]
     Active Substance: PREDNISOLONE ACETATE
     Indication: Product used for unknown indication
     Dosage: NO CHANGE IN FREQUENCY OVER THE PRIOR 8 MONTHS
     Route: 065

REACTIONS (1)
  - Infectious crystalline keratopathy [Recovered/Resolved with Sequelae]
